FAERS Safety Report 13970587 (Version 1)
Quarter: 2017Q3

REPORT INFORMATION
  Report Type: Spontaneous
  Country: US (occurrence: US)
  Receive Date: 20170914
  Receipt Date: 20170914
  Transmission Date: 20171128
  Serious: Yes (Other)
  Sender: FDA-Public Use
  Company Number: US-ASTELLAS-2016US040360

PATIENT
  Age: 84 Year
  Sex: Male

DRUGS (1)
  1. XTANDI [Suspect]
     Active Substance: ENZALUTAMIDE
     Indication: PRODUCT USED FOR UNKNOWN INDICATION
     Route: 048
     Dates: start: 20160825, end: 20160922

REACTIONS (11)
  - Haematuria [Unknown]
  - Initial insomnia [Unknown]
  - Pain [Unknown]
  - Dysgeusia [Unknown]
  - Asthenia [Unknown]
  - Weight decreased [Unknown]
  - Rhinorrhoea [Unknown]
  - Fatigue [Unknown]
  - Dizziness [Unknown]
  - Decreased appetite [Unknown]
  - Vomiting [Unknown]
